FAERS Safety Report 16137679 (Version 6)
Quarter: 2020Q1

REPORT INFORMATION
  Report Type: Spontaneous
  Country: ES (occurrence: ES)
  Receive Date: 20190330
  Receipt Date: 20200205
  Transmission Date: 20200409
  Serious: Yes (Life-Threatening, Hospitalization, Other)
  Sender: FDA-Public Use
  Company Number: ES-AUROBINDO-AUR-APL-2019-016656

PATIENT
  Age: 77 Year
  Sex: Female
  Weight: 63 kg

DRUGS (24)
  1. ATORVASTATIN [Concomitant]
     Active Substance: ATORVASTATIN
     Indication: PRODUCT USED FOR UNKNOWN INDICATION
     Dosage: 10 MILLIGRAM, ONCE A DAY
     Route: 065
  2. OMEPRAZOLE. [Concomitant]
     Active Substance: OMEPRAZOLE
     Indication: PRODUCT USED FOR UNKNOWN INDICATION
     Dosage: 20 MILLIGRAM, ONCE A DAY
     Route: 065
  3. CYCLOSPORINE. [Suspect]
     Active Substance: CYCLOSPORINE
     Indication: STEVENS-JOHNSON SYNDROME
     Dosage: 4 MICROGRAM/KILOGRAM
     Route: 065
  4. ETANERCEPT [Suspect]
     Active Substance: ETANERCEPT
     Dosage: 50 UNK
     Route: 058
  5. CARVEDILOL. [Concomitant]
     Active Substance: CARVEDILOL
     Indication: PRODUCT USED FOR UNKNOWN INDICATION
     Dosage: 50 MILLIGRAM, ONCE A DAY
     Route: 065
  6. FUROSEMIDE. [Concomitant]
     Active Substance: FUROSEMIDE
     Indication: PRODUCT USED FOR UNKNOWN INDICATION
     Dosage: 40 MILLIGRAM, ONCE A DAY
     Route: 065
  7. LEVOTHYROXINE. [Concomitant]
     Active Substance: LEVOTHYROXINE
     Indication: PRIMARY HYPOTHYROIDISM
     Dosage: UNK
     Route: 065
  8. LETROZOLE FILM-COATED TABLET [Suspect]
     Active Substance: LETROZOLE
     Indication: INVASIVE DUCTAL BREAST CARCINOMA
     Dosage: UNK (3 WEEKS OF THERAPY, 1 WEEK REST)
     Route: 065
     Dates: start: 201811, end: 20190306
  9. ETANERCEPT [Suspect]
     Active Substance: ETANERCEPT
     Indication: STEVENS-JOHNSON SYNDROME
     Dosage: 40 MILLIGRAM
     Route: 058
  10. DIGOXIN. [Concomitant]
     Active Substance: DIGOXIN
     Indication: PRODUCT USED FOR UNKNOWN INDICATION
     Dosage: 1 UNK, ONCE A DAY (0.25 UNK, 1X/DAY (0.5 TABLET/24 HOURS) )
     Route: 065
  11. LETROZOLE FILM-COATED TABLET [Suspect]
     Active Substance: LETROZOLE
     Dosage: UNK
     Route: 065
     Dates: start: 20190329
  12. SPIRONOLACTONE. [Concomitant]
     Active Substance: SPIRONOLACTONE
     Indication: PRODUCT USED FOR UNKNOWN INDICATION
     Dosage: 25 MILLIGRAM, ONCE A DAY
     Route: 065
  13. LETROZOLE FILM-COATED TABLET [Suspect]
     Active Substance: LETROZOLE
     Indication: BREAST CANCER
     Dosage: UNK (3 WEEKS OF THERAPY, 1 WEEK REST)
     Route: 065
     Dates: start: 201811, end: 20190307
  14. LETROZOLE FILM-COATED TABLET [Suspect]
     Active Substance: LETROZOLE
     Dosage: 1 DOSAGE FORM, ONCE A DAY
     Route: 048
     Dates: start: 20190501
  15. PALBOCICLIB [Suspect]
     Active Substance: PALBOCICLIB
     Indication: INVASIVE DUCTAL BREAST CARCINOMA
     Dosage: 125 MILLIGRAM, CYCLICAL
     Route: 048
     Dates: start: 20190501
  16. CYCLOSPORINE. [Suspect]
     Active Substance: CYCLOSPORINE
     Dosage: 30 MICROGRAM/KILOGRAM, ONCE A DAY
     Route: 065
  17. CYCLOSPORINE. [Suspect]
     Active Substance: CYCLOSPORINE
     Dosage: HALF DOSAGE
     Route: 065
     Dates: start: 20190311
  18. PARACETAMOL [Concomitant]
     Active Substance: ACETAMINOPHEN
     Indication: PRODUCT USED FOR UNKNOWN INDICATION
     Dosage: 1950 MILLIGRAM, ONCE A DAY
     Route: 065
  19. KISQALI [Suspect]
     Active Substance: RIBOCICLIB
     Indication: BREAST CANCER
     Dosage: UNK (3 WEEKS OF THERAPY, 1 WEEK REST)
     Route: 065
     Dates: start: 201811
  20. SINTROM [Suspect]
     Active Substance: ACENOCOUMAROL
     Indication: ANTICOAGULANT THERAPY
     Dosage: 4 MILLIGRAM, ONCE A DAY
     Route: 048
  21. LOSARTAN. [Concomitant]
     Active Substance: LOSARTAN
     Indication: PRODUCT USED FOR UNKNOWN INDICATION
     Dosage: 25 MILLIGRAM, ONCE A DAY
     Route: 065
  22. CYCLOSPORINE. [Suspect]
     Active Substance: CYCLOSPORINE
     Dosage: 3 MICROGRAM/KILOGRAM
     Route: 065
     Dates: start: 20190308
  23. KISQALI [Suspect]
     Active Substance: RIBOCICLIB
     Indication: INVASIVE LOBULAR BREAST CARCINOMA
     Dosage: 600 MILLIGRAM, ONCE A DAY
     Route: 065
     Dates: start: 20181120, end: 20190306
  24. AMLODIPINE [Concomitant]
     Active Substance: AMLODIPINE BESYLATE
     Indication: PRODUCT USED FOR UNKNOWN INDICATION
     Dosage: UNK
     Route: 065

REACTIONS (40)
  - Neutropenia [Unknown]
  - Hypoalbuminaemia [Unknown]
  - Dermatitis bullous [Unknown]
  - Oesophageal candidiasis [Unknown]
  - Oral candidiasis [Unknown]
  - Temperature regulation disorder [Unknown]
  - Blood lactate dehydrogenase increased [Unknown]
  - Stevens-Johnson syndrome [Recovering/Resolving]
  - Osteoarthritis [Unknown]
  - Primary hypothyroidism [Unknown]
  - Scar [Unknown]
  - Lymphopenia [Unknown]
  - Vulvovaginal candidiasis [Unknown]
  - Superinfection [Unknown]
  - Erythema multiforme [Unknown]
  - Hypokalaemia [Unknown]
  - Drug interaction [Unknown]
  - Product use in unapproved indication [Unknown]
  - Dysphagia [Unknown]
  - Leukopenia [Unknown]
  - Fluid overload [Unknown]
  - Prothrombin time prolonged [Unknown]
  - Lymphadenopathy [Unknown]
  - Pain [Unknown]
  - Prerenal failure [Recovering/Resolving]
  - Skin haemorrhage [Unknown]
  - Malnutrition [Unknown]
  - Psychomotor disadaptation syndrome [Unknown]
  - Vitamin D deficiency [Unknown]
  - Pyrexia [Recovered/Resolved]
  - Electrocardiogram abnormal [Unknown]
  - Back pain [Not Recovered/Not Resolved]
  - Rash [Recovering/Resolving]
  - Hypertension [Unknown]
  - Spondylolisthesis [Unknown]
  - Pancytopenia [Unknown]
  - Toxic epidermal necrolysis [Recovering/Resolving]
  - Anaemia [Recovering/Resolving]
  - Staphylococcal bacteraemia [Unknown]
  - Oedema [Unknown]

NARRATIVE: CASE EVENT DATE: 20190208
